FAERS Safety Report 9776953 (Version 1)
Quarter: 2013Q4

REPORT INFORMATION
  Report Type: Spontaneous
  Country: US (occurrence: US)
  Receive Date: 20131221
  Receipt Date: 20131221
  Transmission Date: 20140711
  Serious: Yes (Other)
  Sender: FDA-Public Use
  Company Number: 2013SP004881

PATIENT
  Age: 67 Year
  Sex: Male

DRUGS (3)
  1. VANCOMYCIN [Suspect]
     Indication: STAPHYLOCOCCAL INFECTION
  2. TOBRAMYCIN SULFATE [Suspect]
     Indication: STAPHYLOCOCCAL INFECTION
  3. HYDROMORPHONE [Concomitant]

REACTIONS (1)
  - Nephropathy toxic [Recovering/Resolving]
